FAERS Safety Report 14984477 (Version 1)
Quarter: 2018Q2

REPORT INFORMATION
  Report Type: Spontaneous
  Country: US (occurrence: US)
  Receive Date: 20180515
  Receipt Date: 20180515
  Transmission Date: 20180711
  Serious: No
  Sender: FDA-Public Use
  Company Number: None

PATIENT
  Age: 80 Year
  Sex: Male

DRUGS (17)
  1. LIPITOR [Concomitant]
     Active Substance: ATORVASTATIN CALCIUM
  2. CLOPIDOGREL [Concomitant]
     Active Substance: CLOPIDOGREL BISULFATE
  3. ZYTIGA [Suspect]
     Active Substance: ABIRATERONE ACETATE
     Indication: PROSTATE CANCER
     Route: 048
     Dates: start: 20180321
  4. JANUMET [Concomitant]
     Active Substance: METFORMIN HYDROCHLORIDE\SITAGLIPTIN PHOSPHATE
  5. VITAMIN B [Concomitant]
     Active Substance: VITAMIN B
  6. BACLOFEN. [Concomitant]
     Active Substance: BACLOFEN
  7. ABIRATERONE [Concomitant]
     Active Substance: ABIRATERONE
  8. XGEVA [Concomitant]
     Active Substance: DENOSUMAB
  9. VITAMIN C [Concomitant]
     Active Substance: ASCORBIC ACID
  10. SYNTHROID [Concomitant]
     Active Substance: LEVOTHYROXINE SODIUM
  11. LISINOPRIL. [Concomitant]
     Active Substance: LISINOPRIL
  12. GLIMEPIRIDE. [Concomitant]
     Active Substance: GLIMEPIRIDE
  13. TRAMADOL. [Concomitant]
     Active Substance: TRAMADOL
  14. PANTOPRAZOLE [Concomitant]
     Active Substance: PANTOPRAZOLE
  15. CALCIUM [Concomitant]
     Active Substance: CALCIUM
  16. PREDNISONE. [Concomitant]
     Active Substance: PREDNISONE
  17. IRON [Concomitant]
     Active Substance: IRON

REACTIONS (1)
  - Blood glucose decreased [None]
